FAERS Safety Report 4909258-3 (Version None)
Quarter: 2006Q1

REPORT INFORMATION
  Report Type: 
  Country: None (occurrence: None)
  Receive Date: 20060209
  Receipt Date: 20060209
  Transmission Date: 20060701
  Serious: Yes (Hospitalization)
  Sender: FDA-Public Use
  Company Number: None

PATIENT
  Sex: Female

DRUGS (8)
  1. OXALIPLATIN 85MG/M2 SANOFI-SYNTHE LABS [Suspect]
     Indication: ENDOCRINE PANCREATIC DISORDER
     Dosage: 170 MG Q 14 DAYS IV
     Route: 042
     Dates: start: 20060102
  2. OXALIPLATIN 85MG/M2 SANOFI-SYNTHE LABS [Suspect]
     Indication: NEOPLASM
     Dosage: 170 MG Q 14 DAYS IV
     Route: 042
     Dates: start: 20060102
  3. LEUCOVORIN 200 MG/M2 IMMUNEX CORP [Suspect]
     Indication: ENDOCRINE PANCREATIC DISORDER
     Dosage: 400 MG Q 14 DAYS IV
     Route: 042
     Dates: start: 20060102
  4. LEUCOVORIN 200 MG/M2 IMMUNEX CORP [Suspect]
     Indication: NEOPLASM
     Dosage: 400 MG Q 14 DAYS IV
     Route: 042
     Dates: start: 20060102
  5. FLUOROURACIL [Suspect]
     Indication: ENDOCRINE PANCREATIC DISORDER
     Dosage: 800 MG BOLUS/2400MG OVER 2 DAYS Q 14 DAYS IV
     Route: 042
     Dates: start: 20060102
  6. FLUOROURACIL [Suspect]
     Indication: NEOPLASM
     Dosage: 800 MG BOLUS/2400MG OVER 2 DAYS Q 14 DAYS IV
     Route: 042
     Dates: start: 20060102
  7. BEVACITUMAB 65 MG/KG GENETECH [Suspect]
     Indication: ENDOCRINE PANCREATIC DISORDER
     Dosage: 42.5 MG Q 14 DAYS IV
     Route: 042
     Dates: start: 20060102
  8. BEVACITUMAB 65 MG/KG GENETECH [Suspect]
     Indication: NEOPLASM
     Dosage: 42.5 MG Q 14 DAYS IV
     Route: 042
     Dates: start: 20060102

REACTIONS (1)
  - ABDOMINAL PAIN [None]
